FAERS Safety Report 4609413-6 (Version None)
Quarter: 2005Q1

REPORT INFORMATION
  Report Type: 
  Country: None (occurrence: None)
  Receive Date: 20050314
  Receipt Date: 20050309
  Transmission Date: 20050727
  Serious: Yes (Hospitalization)
  Sender: FDA-Public Use
  Company Number: 2005-BP-03041RO

PATIENT
  Age: 49 Year
  Sex: Male

DRUGS (2)
  1. FUROSEMIDE [Suspect]
     Indication: HYPERTENSION
     Dosage: 160 MG/DAY
  2. CAPTOPRIL [Concomitant]

REACTIONS (11)
  - ASTHENIA [None]
  - CARCINOEMBRYONIC ANTIGEN INCREASED [None]
  - COLITIS ISCHAEMIC [None]
  - COLITIS ULCERATIVE [None]
  - COLONIC STENOSIS [None]
  - CONSTIPATION [None]
  - DIZZINESS [None]
  - MEDICATION ERROR [None]
  - OVERDOSE [None]
  - TUMOUR ULCERATION [None]
  - WEIGHT DECREASED [None]
